FAERS Safety Report 8167601-9 (Version None)
Quarter: 2012Q1

REPORT INFORMATION
  Report Type: 
  Country: None (occurrence: None)
  Receive Date: 20120227
  Receipt Date: 20120222
  Transmission Date: 20120608
  Serious: Yes (Other)
  Sender: FDA-Public Use
  Company Number: DE-ROCHE-1042903

PATIENT
  Sex: Male

DRUGS (2)
  1. RIBAVIRIN [Suspect]
     Indication: HEPATITIS C
     Dates: start: 20120101
  2. PEGASYS [Suspect]
     Indication: HEPATITIS C
     Dates: start: 20120101

REACTIONS (1)
  - ASTHMA [None]
